FAERS Safety Report 7530743-2 (Version None)
Quarter: 2011Q2

REPORT INFORMATION
  Report Type: 
  Country: None (occurrence: None)
  Receive Date: 20110607
  Receipt Date: 20110601
  Transmission Date: 20111010
  Serious: Yes (Other)
  Sender: FDA-Public Use
  Company Number: US-ABBOTT-11P-163-0729642-00

PATIENT
  Sex: Male

DRUGS (3)
  1. NIASPAN [Suspect]
     Indication: BLOOD CHOLESTEROL INCREASED
     Dates: end: 20110519
  2. ASPIRIN [Concomitant]
     Indication: PROPHYLAXIS
  3. ASPIRIN [Concomitant]
     Indication: FLUSHING

REACTIONS (6)
  - BLOOD PRESSURE INCREASED [None]
  - RASH GENERALISED [None]
  - BURNING SENSATION [None]
  - NECK PAIN [None]
  - LACERATION [None]
  - LOSS OF CONSCIOUSNESS [None]
